FAERS Safety Report 5727086-6 (Version None)
Quarter: 2008Q2

REPORT INFORMATION
  Report Type: 
  Country: None (occurrence: None)
  Receive Date: 20080505
  Receipt Date: 20080425
  Transmission Date: 20081010
  Serious: Yes (Other)
  Sender: FDA-Public Use
  Company Number: US-JNJFOC-20080407715

PATIENT
  Sex: Female
  Weight: 113.4 kg

DRUGS (5)
  1. RISPERDAL [Suspect]
     Indication: DRUG USE FOR UNKNOWN INDICATION
     Dosage: 1-4 MG QD
     Route: 048
  2. LEXAPRO [Concomitant]
  3. DIAVAN [Concomitant]
     Indication: HYPERTENSION
  4. PROVIGIL [Concomitant]
     Indication: MENTAL DISORDER
     Dosage: 400-600 MG A DAY
  5. PROTONIX [Concomitant]
     Indication: GASTROOESOPHAGEAL REFLUX DISEASE

REACTIONS (2)
  - DIABETES MELLITUS [None]
  - SLEEP APNOEA SYNDROME [None]
